FAERS Safety Report 8136932-0 (Version None)
Quarter: 2012Q1

REPORT INFORMATION
  Report Type: 
  Country: None (occurrence: None)
  Receive Date: 20120214
  Receipt Date: 20120208
  Transmission Date: 20120608
  Serious: Yes (Death, Other)
  Sender: FDA-Public Use
  Company Number: JP-MERCK-1202USA00918

PATIENT
  Age: 35 Year
  Sex: Male

DRUGS (4)
  1. METHYLPREDNISOLONE SODIUM SUCCINATE [Suspect]
     Indication: NATURAL KILLER-CELL LEUKAEMIA
     Route: 042
  2. LEUNASE [Suspect]
     Indication: NATURAL KILLER-CELL LEUKAEMIA
     Route: 041
  3. DECADRON PHOSPHATE [Suspect]
     Indication: NATURAL KILLER-CELL LEUKAEMIA
     Route: 051
  4. ETOPOSIDE [Suspect]
     Indication: NATURAL KILLER-CELL LEUKAEMIA
     Route: 065

REACTIONS (4)
  - COAGULATION FACTOR DECREASED [None]
  - BONE MARROW FAILURE [None]
  - NEUTROPHIL COUNT DECREASED [None]
  - LIVER DISORDER [None]
